FAERS Safety Report 7068480-3 (Version None)
Quarter: 2010Q4

REPORT INFORMATION
  Report Type: 
  Country: None (occurrence: None)
  Receive Date: 20101028
  Receipt Date: 20101018
  Transmission Date: 20110411
  Serious: Yes (Other)
  Sender: FDA-Public Use
  Company Number: DE-ROCHE-735938

PATIENT
  Age: 31 Year
  Sex: Female

DRUGS (6)
  1. BEVACIZUMAB [Suspect]
     Indication: ANAPLASTIC ASTROCYTOMA
     Route: 065
  2. IRINOTECAN HCL [Suspect]
     Indication: ANAPLASTIC ASTROCYTOMA
     Route: 065
  3. TEMOZOLOMIDE [Concomitant]
     Dosage: 1 WEEK ON 1 WEEK OFF
  4. PROCARBAZINE [Concomitant]
  5. LOMUSTINE [Concomitant]
  6. VINCRISTINE [Concomitant]

REACTIONS (1)
  - MALIGNANT GLIOMA [None]
